FAERS Safety Report 7748774-6 (Version None)
Quarter: 2011Q3

REPORT INFORMATION
  Report Type: 
  Country: None (occurrence: None)
  Receive Date: 20110913
  Receipt Date: 20110913
  Transmission Date: 20111222
  Serious: Yes (Life-Threatening)
  Sender: FDA-Public Use
  Company Number: None

PATIENT
  Age: 54 Year
  Sex: Female

DRUGS (2)
  1. ISOVUE-370 [Suspect]
     Indication: HAEMATINURIA
     Dosage: ISOVUE-370 100 ML ONCE IV
     Route: 042
     Dates: start: 20100818
  2. ISOVUE-370 [Suspect]
     Indication: UROGRAM
     Dosage: ISOVUE-370 100 ML ONCE IV
     Route: 042
     Dates: start: 20100818

REACTIONS (2)
  - GRAND MAL CONVULSION [None]
  - HEART RATE INCREASED [None]
